FAERS Safety Report 23495510 (Version 1)
Quarter: 2024Q1

REPORT INFORMATION
  Report Type: Spontaneous
  Country: GB (occurrence: GB)
  Receive Date: 20240207
  Receipt Date: 20240207
  Transmission Date: 20240410
  Serious: Yes (Death, Other)
  Sender: FDA-Public Use
  Company Number: GB-DUCHESNAY-2024GB000041

PATIENT

DRUGS (2)
  1. DOXYLAMINE SUCCINATE\PYRIDOXINE HYDROCHLORIDE [Suspect]
     Active Substance: DOXYLAMINE SUCCINATE\PYRIDOXINE HYDROCHLORIDE
     Indication: Hyperemesis gravidarum
     Dosage: UNK
     Dates: start: 202208, end: 202209
  2. DOXYLAMINE SUCCINATE\PYRIDOXINE HYDROCHLORIDE [Suspect]
     Active Substance: DOXYLAMINE SUCCINATE\PYRIDOXINE HYDROCHLORIDE
     Dosage: UNK
     Dates: start: 202209, end: 2022

REACTIONS (12)
  - Completed suicide [Fatal]
  - Asthenia [Unknown]
  - Condition aggravated [Unknown]
  - Decreased appetite [Unknown]
  - Paranoia [Unknown]
  - Anxiety [Unknown]
  - Psychiatric symptom [Unknown]
  - Depressed mood [Unknown]
  - Product communication issue [Unknown]
  - Malaise [Unknown]
  - Intentional product use issue [Unknown]
  - Off label use [Unknown]

NARRATIVE: CASE EVENT DATE: 20220101
